FAERS Safety Report 6208207-8 (Version None)
Quarter: 2009Q2

REPORT INFORMATION
  Report Type: 
  Country: None (occurrence: None)
  Receive Date: 20090529
  Receipt Date: 20090521
  Transmission Date: 20091009
  Serious: Yes (Life-Threatening, Hospitalization, Other)
  Sender: FDA-Public Use
  Company Number: PHHY2008CA08182

PATIENT
  Sex: Male

DRUGS (11)
  1. CLOZARIL [Suspect]
     Indication: SCHIZOPHRENIA, PARANOID TYPE
     Dosage: 300 MG, UNK
     Route: 048
     Dates: start: 19980210, end: 20080501
  2. CLOZARIL [Suspect]
     Dosage: 500 MG
     Route: 048
     Dates: end: 20080601
  3. CLOZARIL [Suspect]
     Route: 048
  4. EPIVAL [Concomitant]
     Dosage: 750 MG
  5. EPIVAL [Concomitant]
     Dosage: 1000 MG
  6. HALCION [Concomitant]
     Dosage: 0.25
  7. KEFLEX [Concomitant]
  8. CELEXA [Concomitant]
     Dosage: 20 MG, UNK
  9. ATIVAN [Concomitant]
     Dosage: 1 MG, QD
  10. ATIVAN [Concomitant]
     Dosage: 2 MG, QD
  11. IMERON [Concomitant]
     Dosage: 15 MG, QHS

REACTIONS (20)
  - ABASIA [None]
  - AGITATION [None]
  - ARTHRALGIA [None]
  - BLISTER [None]
  - BLOOD CREATINE PHOSPHOKINASE INCREASED [None]
  - BODY TEMPERATURE INCREASED [None]
  - BRADYCARDIA [None]
  - CONFUSIONAL STATE [None]
  - DELIRIUM [None]
  - DISORIENTATION [None]
  - DRUG ABUSE [None]
  - MYALGIA [None]
  - NEUROLEPTIC MALIGNANT SYNDROME [None]
  - PAIN IN EXTREMITY [None]
  - PSYCHOTIC DISORDER [None]
  - PYREXIA [None]
  - TACHYCARDIA [None]
  - TOXIC SKIN ERUPTION [None]
  - TREATMENT NONCOMPLIANCE [None]
  - UNRESPONSIVE TO STIMULI [None]
